FAERS Safety Report 16755797 (Version 2)
Quarter: 2019Q3

REPORT INFORMATION
  Report Type: Spontaneous
  Country: US (occurrence: US)
  Receive Date: 20190829
  Receipt Date: 20190923
  Transmission Date: 20191005
  Serious: Yes (Hospitalization)
  Sender: FDA-Public Use
  Company Number: US-ROCHE-2386408

PATIENT
  Age: 30 Year
  Sex: Female

DRUGS (1)
  1. OCREVUS [Suspect]
     Active Substance: OCRELIZUMAB
     Indication: PRODUCT USED FOR UNKNOWN INDICATION
     Route: 065

REACTIONS (11)
  - Dyspnoea [Recovered/Resolved]
  - Hypoaesthesia [Unknown]
  - Heart rate increased [Unknown]
  - Chest discomfort [Unknown]
  - Paraesthesia [Unknown]
  - Headache [Unknown]
  - Infusion related reaction [Unknown]
  - Palpitations [Unknown]
  - Arthralgia [Unknown]
  - Pain [Unknown]
  - Blood pressure increased [Unknown]
